FAERS Safety Report 6947328-9 (Version None)
Quarter: 2010Q3

REPORT INFORMATION
  Report Type: 
  Country: None (occurrence: None)
  Receive Date: 20100827
  Receipt Date: 20090909
  Transmission Date: 20110219
  Serious: No
  Sender: FDA-Public Use
  Company Number: US-ABBOTT-09P-163-0596839-00

PATIENT
  Sex: Male
  Weight: 82.174 kg

DRUGS (7)
  1. NIASPAN [Suspect]
     Indication: BLOOD CHOLESTEROL INCREASED
     Dosage: DAILY AT HOUR OF SLEEP
     Route: 048
     Dates: start: 20090908
  2. PLAVIX [Concomitant]
     Indication: CORONARY ARTERY BYPASS
     Dosage: DAILY IN AM
     Route: 048
  3. ASPIRIN [Concomitant]
     Indication: CORONARY ARTERY BYPASS
     Dosage: DAILY AT HOUR OF SLEEP
     Route: 048
  4. FOLBIC HEART VITAMIN [Concomitant]
     Indication: CARDIAC DISORDER
     Dosage: DAILY IN AM
     Route: 048
  5. OMEGA 3 VITAMIN [Concomitant]
     Indication: CARDIAC DISORDER
     Dosage: DAILY IN AM
     Route: 048
  6. MULTI-VITAMIN [Concomitant]
     Indication: PRODUCT USED FOR UNKNOWN INDICATION
     Dosage: DAILY IN AM
     Route: 048
  7. NEXIUM [Concomitant]
     Indication: GASTRITIS
     Dosage: DAILY IN AM
     Route: 048

REACTIONS (2)
  - MIDDLE INSOMNIA [None]
  - MIGRAINE [None]
